FAERS Safety Report 21050362 (Version 1)
Quarter: 2022Q3

REPORT INFORMATION
  Report Type: Spontaneous
  Country: JP (occurrence: JP)
  Receive Date: 20220707
  Receipt Date: 20220707
  Transmission Date: 20221027
  Serious: Yes (Life-Threatening, Other)
  Sender: FDA-Public Use
  Company Number: JP-SUN PHARMACEUTICAL INDUSTRIES LTD-2022RR-343286

PATIENT
  Age: 64 Year
  Sex: Female
  Weight: 74 kg

DRUGS (15)
  1. MIDAZOLAM [Suspect]
     Active Substance: MIDAZOLAM
     Indication: Creutzfeldt-Jakob disease
     Dosage: CONTINUOUS
     Route: 042
  2. DIAZEPAM [Suspect]
     Active Substance: DIAZEPAM
     Indication: Creutzfeldt-Jakob disease
     Dosage: UNK
     Route: 042
  3. LEVETIRACETAM [Suspect]
     Active Substance: LEVETIRACETAM
     Indication: Creutzfeldt-Jakob disease
     Dosage: UNK
     Route: 065
  4. AMPICILLIN SODIUM\SULBACTAM SODIUM [Suspect]
     Active Substance: AMPICILLIN SODIUM\SULBACTAM SODIUM
     Indication: Pneumonia
     Dosage: UNK
     Route: 065
  5. PROPOFOL [Suspect]
     Active Substance: PROPOFOL
     Indication: Creutzfeldt-Jakob disease
     Dosage: UNK
     Route: 065
  6. LACOSAMIDE [Suspect]
     Active Substance: LACOSAMIDE
     Indication: Creutzfeldt-Jakob disease
     Dosage: 100 MILLIGRAM, UNK
     Route: 065
  7. FOSPHENYTOIN [Suspect]
     Active Substance: FOSPHENYTOIN
     Indication: Creutzfeldt-Jakob disease
     Dosage: 1500 MILLIGRAM
     Route: 065
  8. FOSPHENYTOIN [Suspect]
     Active Substance: FOSPHENYTOIN
     Dosage: 750 MILLIGRAM, MAINTENANCE DOSE
     Route: 065
  9. PHENYTOIN [Suspect]
     Active Substance: PHENYTOIN
     Indication: Creutzfeldt-Jakob disease
     Dosage: 200 MILLIGRAM, UNK
  10. DEXMEDETOMIDINE [Suspect]
     Active Substance: DEXMEDETOMIDINE
     Indication: Creutzfeldt-Jakob disease
     Dosage: UNK
     Route: 065
  11. METHYLPREDNISOLONE [Suspect]
     Active Substance: METHYLPREDNISOLONE
     Indication: Seizure
     Dosage: UNK
     Route: 065
  12. CLOBAZAM [Suspect]
     Active Substance: CLOBAZAM
     Indication: Creutzfeldt-Jakob disease
     Dosage: UNK
     Route: 065
  13. TOPIRAMATE [Suspect]
     Active Substance: TOPIRAMATE
     Indication: Creutzfeldt-Jakob disease
     Dosage: UNK
     Route: 065
  14. CLONAZEPAM [Suspect]
     Active Substance: CLONAZEPAM
     Indication: Creutzfeldt-Jakob disease
     Dosage: UNK
     Route: 065
  15. PERAMPANEL [Suspect]
     Active Substance: PERAMPANEL
     Indication: Creutzfeldt-Jakob disease
     Dosage: UNK
     Route: 065

REACTIONS (5)
  - Respiratory failure [Unknown]
  - Disease recurrence [Unknown]
  - Agitation [Unknown]
  - Drug ineffective [Unknown]
  - Therapeutic product effect incomplete [Unknown]
